FAERS Safety Report 6821022-7 (Version None)
Quarter: 2010Q3

REPORT INFORMATION
  Report Type: 
  Country: None (occurrence: None)
  Receive Date: 20100707
  Receipt Date: 20080103
  Transmission Date: 20110219
  Serious: Yes (Other)
  Sender: FDA-Public Use
  Company Number: US-PFIZER INC-2008001384

PATIENT
  Sex: Female
  Weight: 42.2 kg

DRUGS (6)
  1. ZOLOFT [Suspect]
     Indication: POST-TRAUMATIC STRESS DISORDER
     Dates: start: 20040101
  2. ZOLOFT [Suspect]
     Indication: MAJOR DEPRESSION
  3. ZOLOFT [Suspect]
     Indication: ANXIETY
  4. SEROQUEL [Concomitant]
  5. ADDERALL 10 [Concomitant]
  6. MELATONIN [Concomitant]

REACTIONS (2)
  - HALLUCINATION [None]
  - SUICIDAL IDEATION [None]
